FAERS Safety Report 24391848 (Version 3)
Quarter: 2025Q1

REPORT INFORMATION
  Report Type: Spontaneous
  Country: US (occurrence: US)
  Receive Date: 20241003
  Receipt Date: 20250204
  Transmission Date: 20250408
  Serious: No
  Sender: MYLAN
  Company Number: US-MYLANLABS-2024M1087494

PATIENT
  Sex: Female
  Weight: 54.43 kg

DRUGS (2)
  1. GABAPENTIN [Suspect]
     Active Substance: GABAPENTIN
     Indication: Neuralgia
     Dosage: 200 MILLIGRAM, HS (AT NIGHT)
     Route: 065
  2. GABAPENTIN [Suspect]
     Active Substance: GABAPENTIN
     Dosage: 300 MILLIGRAM, HS (AT NIGHT)
     Route: 065

REACTIONS (4)
  - Sleep disorder [Unknown]
  - Drug intolerance [Unknown]
  - Intentional product misuse [Unknown]
  - Off label use [Unknown]
